FAERS Safety Report 8347964-1 (Version None)
Quarter: 2012Q2

REPORT INFORMATION
  Report Type: 
  Country: None (occurrence: None)
  Receive Date: 20120509
  Receipt Date: 20120430
  Transmission Date: 20120825
  Serious: Yes (Other)
  Sender: FDA-Public Use
  Company Number: US-ELI_LILLY_AND_COMPANY-US201205000508

PATIENT
  Sex: Male

DRUGS (2)
  1. EFFIENT [Suspect]
     Indication: MYOCARDIAL INFARCTION
     Dosage: UNK, UNKNOWN
  2. ASPIRIN [Concomitant]
     Dosage: UNK, UNKNOWN

REACTIONS (2)
  - THROMBOSIS [None]
  - MYOCARDIAL INFARCTION [None]
